FAERS Safety Report 17724890 (Version 1)
Quarter: 2020Q2

REPORT INFORMATION
  Report Type: Spontaneous
  Country: US (occurrence: US)
  Receive Date: 20200429
  Receipt Date: 20200429
  Transmission Date: 20200714
  Serious: Yes (Hospitalization, Other)
  Sender: FDA-Public Use
  Company Number: US-GLAXOSMITHKLINE-US2020070495

PATIENT
  Age: 77 Year
  Sex: Male

DRUGS (1)
  1. TUMS [Suspect]
     Active Substance: CALCIUM CARBONATE
     Indication: DYSPEPSIA
     Dosage: 1 DF
     Dates: start: 20200415

REACTIONS (13)
  - Jaundice [Unknown]
  - Liver injury [Unknown]
  - Skin discolouration [Unknown]
  - Emotional distress [Unknown]
  - Obstruction [Unknown]
  - Renal disorder [Unknown]
  - Pneumonia [Unknown]
  - Inflammation [Unknown]
  - Drug hypersensitivity [Unknown]
  - Product use in unapproved indication [Unknown]
  - Nephrolithiasis [Unknown]
  - Anxiety [Unknown]
  - Ill-defined disorder [Unknown]

NARRATIVE: CASE EVENT DATE: 20200415
